FAERS Safety Report 7315986-5 (Version None)
Quarter: 2011Q1

REPORT INFORMATION
  Report Type: 
  Country: None (occurrence: None)
  Receive Date: 20110225
  Receipt Date: 20110214
  Transmission Date: 20110831
  Serious: Yes (Other)
  Sender: FDA-Public Use
  Company Number: PHHY2011US13090

PATIENT
  Sex: Female

DRUGS (5)
  1. METHOTREXATE [Concomitant]
     Indication: POLYMYALGIA RHEUMATICA
  2. DEXA [Concomitant]
  3. RECLAST [Suspect]
     Dosage: UNK
     Dates: start: 20091201
  4. RECLAST [Suspect]
     Indication: OSTEOPOROSIS
     Dosage: UNK
     Dates: start: 20080101
  5. PREDNISOLONE [Concomitant]
     Indication: POLYMYALGIA RHEUMATICA

REACTIONS (4)
  - BONE PAIN [None]
  - INFLUENZA LIKE ILLNESS [None]
  - STERNAL FRACTURE [None]
  - DRUG INEFFECTIVE [None]
